FAERS Safety Report 17715366 (Version 1)
Quarter: 2020Q2

REPORT INFORMATION
  Report Type: Spontaneous
  Country: ES (occurrence: ES)
  Receive Date: 20200427
  Receipt Date: 20200427
  Transmission Date: 20200714
  Serious: Yes (Other)
  Sender: FDA-Public Use
  Company Number: NVSC2020ES111777

PATIENT
  Age: 62 Year
  Sex: Male

DRUGS (6)
  1. VORICONAZOL [Suspect]
     Active Substance: VORICONAZOLE
     Indication: RESPIRATORY TRACT INFECTION
     Dosage: 960 MG, QD
     Route: 042
     Dates: start: 20191004, end: 20191009
  2. KETAMINE HYDROCHLORIDE. [Concomitant]
     Active Substance: KETAMINE HYDROCHLORIDE
     Indication: BRONCHOSPASM
     Route: 042
     Dates: start: 20191002, end: 20191008
  3. PIPERACILLIN,TAZOBACTAM [Suspect]
     Active Substance: PIPERACILLIN SODIUM\TAZOBACTAM SODIUM
     Indication: RESPIRATORY TRACT INFECTION
     Route: 042
     Dates: start: 20191004, end: 20191009
  4. LEVOFLOXACIN. [Concomitant]
     Active Substance: LEVOFLOXACIN
     Indication: RESPIRATORY TRACT INFECTION
     Dosage: 500 MG, QD
     Route: 042
     Dates: start: 20190926, end: 20191003
  5. MIDAZOLAM. [Concomitant]
     Active Substance: MIDAZOLAM
     Indication: BRONCHOSPASM
     Dosage: 462 MG, QD
     Route: 042
     Dates: start: 20190926, end: 20191010
  6. FENTANIL [Concomitant]
     Active Substance: FENTANYL
     Indication: BRONCHOSPASM
     Dosage: 1.14 MG, QD
     Route: 042
     Dates: start: 20190927, end: 20191010

REACTIONS (2)
  - Hepatitis [Recovering/Resolving]
  - Hyperbilirubinaemia [Recovering/Resolving]

NARRATIVE: CASE EVENT DATE: 20191007
